FAERS Safety Report 12773868 (Version 1)
Quarter: 2016Q3

REPORT INFORMATION
  Report Type: Spontaneous
  Country: US (occurrence: US)
  Receive Date: 20160923
  Receipt Date: 20160923
  Transmission Date: 20161109
  Serious: Yes (Death, Other)
  Sender: FDA-Public Use
  Company Number: US-TAIHO ONCOLOGY INC-EU-2016-01015

PATIENT
  Sex: Male

DRUGS (9)
  1. COREG [Concomitant]
     Active Substance: CARVEDILOL
     Dosage: NI
  2. LONSURF [Suspect]
     Active Substance: TIPIRACIL HYDROCHLORIDE\TRIFLURIDINE
     Indication: COLON CANCER
     Route: 048
     Dates: start: 20160420, end: 2016
  3. NOVOLOG [Concomitant]
     Active Substance: INSULIN ASPART
     Dosage: NI
  4. LANTUS [Concomitant]
     Active Substance: INSULIN GLARGINE
     Dosage: NI
  5. CEFPODOXIME [Concomitant]
     Active Substance: CEFPODOXIME
     Dosage: NI
  6. ZINC [Concomitant]
     Active Substance: ZINC\ZINC CHLORIDE
     Dosage: NI
  7. OMEPRAZOLE. [Concomitant]
     Active Substance: OMEPRAZOLE
     Dosage: NI
  8. ACETYLSALICYLIC ACID [Concomitant]
     Active Substance: ASPIRIN
     Dosage: NI
  9. LASIX [Concomitant]
     Active Substance: FUROSEMIDE
     Dosage: NI

REACTIONS (4)
  - Death [Fatal]
  - Anaemia [Unknown]
  - Constipation [Unknown]
  - Asthenia [Unknown]

NARRATIVE: CASE EVENT DATE: 2016
